FAERS Safety Report 8999003 (Version 2)
Quarter: 2013Q1

REPORT INFORMATION
  Report Type: Spontaneous
  Country: US (occurrence: US)
  Receive Date: 20130103
  Receipt Date: 20130221
  Transmission Date: 20140127
  Serious: No
  Sender: FDA-Public Use
  Company Number: US-VERTEX PHARMACEUTICALS INC.-2013-000011

PATIENT
  Age: 51 Year
  Sex: Female

DRUGS (6)
  1. INCIVEK [Suspect]
     Indication: HEPATITIS C
     Dosage: UNK
     Route: 048
     Dates: start: 201212
  2. PEGYLATED INTERFERON ALFA-2A [Suspect]
     Indication: HEPATITIS C
     Dosage: UNK
     Dates: start: 201212
  3. RIBAVIRIN [Suspect]
     Indication: HEPATITIS C
     Dosage: UNK
     Dates: start: 201212
  4. ALBUTEROL [Concomitant]
  5. CALCIUM [Concomitant]
     Dosage: UNK, BID
  6. CYANOCOBALAMIN [Concomitant]

REACTIONS (2)
  - Fatigue [Unknown]
  - Rash generalised [Recovered/Resolved]
